FAERS Safety Report 14260791 (Version 1)
Quarter: 2017Q4

REPORT INFORMATION
  Report Type: Spontaneous
  Country: IT (occurrence: IT)
  Receive Date: 20171207
  Receipt Date: 20171207
  Transmission Date: 20180321
  Serious: Yes (Hospitalization)
  Sender: FDA-Public Use
  Company Number: IT-IPSEN BIOPHARMACEUTICALS, INC.-2017-15528

PATIENT
  Age: 70 Year
  Sex: Male

DRUGS (2)
  1. EFFENTORA [Concomitant]
     Active Substance: FENTANYL CITRATE
  2. IPSTYL 120MG [Suspect]
     Active Substance: LANREOTIDE ACETATE
     Indication: PANCREATIC NEUROENDOCRINE TUMOUR
     Dosage: 120 MG
     Route: 058
     Dates: start: 20150808

REACTIONS (6)
  - Neoplasm prostate [Unknown]
  - Abdominal pain upper [Unknown]
  - Abdominal pain [Unknown]
  - Cardiac disorder [Unknown]
  - Arthralgia [Unknown]
  - Myocardial infarction [Unknown]

NARRATIVE: CASE EVENT DATE: 20151024
